FAERS Safety Report 4745767-8 (Version None)
Quarter: 2005Q3

REPORT INFORMATION
  Report Type: 
  Country: None (occurrence: None)
  Receive Date: 20050815
  Receipt Date: 20050815
  Transmission Date: 20060218
  Serious: Yes (Other)
  Sender: FDA-Public Use
  Company Number: None

PATIENT
  Sex: Male
  Weight: 127.0072 kg

DRUGS (4)
  1. PAXIL [Suspect]
     Indication: ANXIETY
     Dosage: 12.5 MG  ONCE PER DAY  ORAL
     Route: 048
     Dates: start: 20020927, end: 20050427
  2. PAXIL [Suspect]
     Indication: DEPRESSION
     Dosage: 12.5 MG  ONCE PER DAY  ORAL
     Route: 048
     Dates: start: 20020927, end: 20050427
  3. PAXIL [Suspect]
     Indication: ANXIETY
     Dosage: 20 MG   ONCE PER DAY  ORAL
     Route: 048
     Dates: start: 20050427, end: 20050802
  4. PAXIL [Suspect]
     Indication: DEPRESSION
     Dosage: 20 MG   ONCE PER DAY  ORAL
     Route: 048
     Dates: start: 20050427, end: 20050802

REACTIONS (8)
  - BLEPHAROSPASM [None]
  - CHILLS [None]
  - DISORIENTATION [None]
  - DISSOCIATION [None]
  - DIZZINESS [None]
  - DRUG WITHDRAWAL SYNDROME [None]
  - FEELING ABNORMAL [None]
  - MUSCLE TWITCHING [None]
